FAERS Safety Report 11031036 (Version 1)
Quarter: 2015Q2

REPORT INFORMATION
  Report Type: Spontaneous
  Country: US (occurrence: US)
  Receive Date: 20150415
  Receipt Date: 20150415
  Transmission Date: 20150821
  Serious: No
  Sender: FDA-Public Use
  Company Number: US-ASTRAZENECA-2014SE74081

PATIENT
  Age: 85 Year
  Sex: Female

DRUGS (2)
  1. WARFIN [Concomitant]
     Active Substance: WARFARIN
     Dosage: UNKNOWN
  2. PRILOSEC OTC [Suspect]
     Active Substance: OMEPRAZOLE MAGNESIUM
     Dosage: 1 TABLET 1 TIME PER DAY FOR 19 DAYS
     Route: 048
     Dates: start: 20140911, end: 20140929

REACTIONS (2)
  - Chest discomfort [Recovered/Resolved]
  - Diarrhoea [Recovered/Resolved]
